FAERS Safety Report 9208779 (Version 1)
Quarter: 2013Q1

REPORT INFORMATION
  Report Type: Spontaneous
  Country: US (occurrence: None)
  Receive Date: 20120817
  Receipt Date: 20120817
  Transmission Date: 20140127
  Serious: Yes (Other)
  Sender: FDA-Public Use
  Company Number: 129518

PATIENT
  Age: 51 Year
  Sex: Male

DRUGS (2)
  1. CYTARABINE [Suspect]
     Indication: ACUTE MYELOID LEUKAEMIA
     Dosage: UNK
     Dates: start: 20110307, end: 20110311
  2. DAUNORUBICIN HCL [Suspect]
     Dosage: UNK
     Dates: start: 20110307, end: 20110311

REACTIONS (1)
  - Thrombocytopenia [None]
